FAERS Safety Report 17614899 (Version 2)
Quarter: 2020Q3

REPORT INFORMATION
  Report Type: Report from Study
  Country: US (occurrence: US)
  Receive Date: 20200402
  Receipt Date: 20200702
  Transmission Date: 20201102
  Serious: Yes (Hospitalization)
  Sender: FDA-Public Use
  Company Number: US-ROCHE-2572836

PATIENT
  Age: 68 Year
  Sex: Male
  Weight: 88.53 kg

DRUGS (13)
  1. VENETOCLAX. [Suspect]
     Active Substance: VENETOCLAX
     Dosage: TAKE 2?10 MG TABLETS BY MOUTH FOR 1 WEEK THEN TAKE 1?50 MG TABLET BY MOUTH FOR 1 WEEK THEN TAKE 1?10
     Route: 048
     Dates: start: 202001, end: 202001
  2. METOPROLOL. [Concomitant]
     Active Substance: METOPROLOL
  3. VENETOCLAX. [Suspect]
     Active Substance: VENETOCLAX
     Indication: ATRIAL FIBRILLATION
     Dosage: TAKE 2?10 MG TABLETS BY MOUTH FOR 1 WEEK THEN TAKE 1?50 MG TABLET BY MOUTH FOR 1 WEEK THEN TAKE 1?10
     Route: 048
     Dates: start: 201912, end: 201912
  4. VENETOCLAX. [Suspect]
     Active Substance: VENETOCLAX
     Dosage: TAKE 2?10 MG TABLETS BY MOUTH FOR 1 WEEK THEN TAKE 1?50 MG TABLET BY MOUTH FOR 1 WEEK THEN TAKE 1?10
     Route: 048
     Dates: start: 202001, end: 202001
  5. RITUXIMAB. [Suspect]
     Active Substance: RITUXIMAB
     Indication: LYMPHOCYTIC LEUKAEMIA
     Dosage: INFUSE 1070MG INTRAVENOUSLY EVERY 28 DAY(S) FOR CYCLES 2?6
     Route: 041
  6. LEVOTHYROXINE. [Concomitant]
     Active Substance: LEVOTHYROXINE
     Indication: HYPOTHYROIDISM
  7. PRAVASTATIN. [Concomitant]
     Active Substance: PRAVASTATIN
     Indication: BLOOD CHOLESTEROL INCREASED
  8. WARFARIN [Concomitant]
     Active Substance: WARFARIN
  9. VENETOCLAX. [Suspect]
     Active Substance: VENETOCLAX
     Indication: LYMPHOCYTIC LEUKAEMIA
     Dosage: TAKE 2?10 MG TABLETS BY MOUTH FOR 1 WEEK THEN TAKE 1?50 MG TABLET BY MOUTH FOR 1 WEEK THEN TAKE 1?10
     Route: 048
     Dates: start: 201912, end: 201912
  10. VENETOCLAX. [Suspect]
     Active Substance: VENETOCLAX
     Dosage: TAKE 2?10 MG TABLETS BY MOUTH FOR 1 WEEK THEN TAKE 1?50 MG TABLET BY MOUTH FOR 1 WEEK THEN TAKE 1?10
     Route: 048
     Dates: start: 20200603
  11. RITUXIMAB. [Suspect]
     Active Substance: RITUXIMAB
     Indication: ATRIAL FIBRILLATION
  12. VENETOCLAX. [Suspect]
     Active Substance: VENETOCLAX
     Dosage: TAKE 2?10 MG TABLETS BY MOUTH FOR 1 WEEK THEN TAKE 1?50 MG TABLET BY MOUTH FOR 1 WEEK THEN TAKE 1?10
     Route: 048
     Dates: start: 202001, end: 202001
  13. VENETOCLAX. [Suspect]
     Active Substance: VENETOCLAX
     Dosage: TAKE 2?10 MG TABLETS BY MOUTH FOR 1 WEEK THEN TAKE 1?50 MG TABLET BY MOUTH FOR 1 WEEK THEN TAKE 1?10
     Route: 048
     Dates: start: 20200319, end: 20200602

REACTIONS (6)
  - Gastrooesophageal reflux disease [Not Recovered/Not Resolved]
  - Bronchitis [Recovered/Resolved]
  - Sinusitis [Recovered/Resolved]
  - Dizziness [Recovered/Resolved]
  - Atrial fibrillation [Recovered/Resolved]
  - Laryngeal ulceration [Not Recovered/Not Resolved]

NARRATIVE: CASE EVENT DATE: 20200308
